FAERS Safety Report 19829722 (Version 2)
Quarter: 2021Q3

REPORT INFORMATION
  Report Type: Spontaneous
  Country: US (occurrence: US)
  Receive Date: 20210915
  Receipt Date: 20210920
  Transmission Date: 20211014
  Serious: Yes (Other)
  Sender: FDA-Public Use
  Company Number: US-SA-2021SA301451

PATIENT
  Sex: Male

DRUGS (2)
  1. LANTUS SOLOSTAR [Suspect]
     Active Substance: INSULIN GLARGINE
     Dosage: 30 IU
     Route: 065
  2. LANTUS SOLOSTAR [Suspect]
     Active Substance: INSULIN GLARGINE
     Dosage: UNK(WHEN DIAL UP DOSE OF 30 UNITS AND INJECT, THE PLUNGER SLIPS AND DOESN^T INJECT SOME (OR ALL?) OF
     Route: 065

REACTIONS (3)
  - Incorrect dose administered by device [Unknown]
  - Diabetes mellitus inadequate control [Unknown]
  - Device issue [Unknown]

NARRATIVE: CASE EVENT DATE: 2021
